FAERS Safety Report 8831350 (Version 2)
Quarter: 2012Q4

REPORT INFORMATION
  Report Type: 
  Country: US (occurrence: US)
  Receive Date: 20121008
  Receipt Date: 20121024
  Transmission Date: 20130627
  Serious: Yes (Hospitalization, Disabling, Other)
  Sender: FDA-Public Use
  Company Number: US-009507513-1205USA02653

PATIENT

DRUGS (3)
  1. COSOPT [Suspect]
     Indication: OPEN ANGLE GLAUCOMA
     Dosage: UNK UNK, bid
     Route: 047
     Dates: start: 20050512, end: 20070709
  2. TRAVATAN [Suspect]
     Indication: GLAUCOMA
     Route: 047
     Dates: start: 20061018, end: 20070709
  3. XALATAN [Suspect]
     Dosage: UNK

REACTIONS (67)
  - Oculorespiratory syndrome [Unknown]
  - Bladder transitional cell carcinoma stage I [Unknown]
  - Deafness neurosensory [Not Recovered/Not Resolved]
  - Emphysema [Unknown]
  - Chronic obstructive pulmonary disease [Unknown]
  - Gastrooesophageal reflux disease [Unknown]
  - Dermatitis [Unknown]
  - Nephrocalcinosis [Unknown]
  - Deformity [Unknown]
  - Cataract nuclear [Unknown]
  - Benign prostatic hyperplasia [Unknown]
  - Osteoarthritis [Unknown]
  - Periorbital oedema [Unknown]
  - Lung disorder [Unknown]
  - Loss of consciousness [Unknown]
  - Rheumatoid arthritis [Unknown]
  - Ocular hyperaemia [Unknown]
  - Pain [Unknown]
  - Blood urine present [Unknown]
  - Cough [Not Recovered/Not Resolved]
  - Wheezing [Not Recovered/Not Resolved]
  - Nasal congestion [Unknown]
  - Chronic sinusitis [Unknown]
  - Nasal septum deviation [Unknown]
  - Laryngitis [Unknown]
  - Asthma [Unknown]
  - Coronary artery disease [Unknown]
  - Eye infection [Unknown]
  - Pinguecula [Unknown]
  - Dry eye [Unknown]
  - Gastritis [Unknown]
  - Arthralgia [Unknown]
  - Blood cholesterol increased [Not Recovered/Not Resolved]
  - Eye irritation [Unknown]
  - Dizziness [Not Recovered/Not Resolved]
  - Heart rate irregular [Not Recovered/Not Resolved]
  - Nausea [Unknown]
  - Syncope [Recovered/Resolved]
  - Dyspnoea [Unknown]
  - Chest pain [Not Recovered/Not Resolved]
  - Rhinorrhoea [Unknown]
  - Urinary tract infection [Unknown]
  - Cystitis [Unknown]
  - Sinusitis [Unknown]
  - Glaucoma [Recovered/Resolved]
  - Intraocular pressure increased [Unknown]
  - Prostatic disorder [Unknown]
  - Skin discolouration [Unknown]
  - Dyspnoea [Recovered/Resolved]
  - Abdominal pain upper [Recovered/Resolved]
  - Adverse event [Unknown]
  - Acne [Unknown]
  - Chest pain [Unknown]
  - Implantable defibrillator insertion [Unknown]
  - Myocardial ischaemia [Unknown]
  - Arrhythmia [Unknown]
  - Arrhythmia [Unknown]
  - Cardiac disorder [Unknown]
  - Myocardial infarction [Unknown]
  - Tricuspid valve incompetence [Unknown]
  - Mitral valve incompetence [Unknown]
  - Aortic arteriosclerosis [Unknown]
  - Left ventricular hypertrophy [Unknown]
  - Prostatitis [Unknown]
  - Aortic valve incompetence [Unknown]
  - Hypotension [Unknown]
  - Heart rate increased [Unknown]
